FAERS Safety Report 20909131 (Version 5)
Quarter: 2022Q4

REPORT INFORMATION
  Report Type: Spontaneous
  Country: IT (occurrence: IT)
  Receive Date: 20220603
  Receipt Date: 20221129
  Transmission Date: 20230112
  Serious: Yes (Hospitalization)
  Sender: FDA-Public Use
  Company Number: IT-ROCHE-3095341

PATIENT
  Age: 64 Year
  Sex: Female
  Weight: 62 kg

DRUGS (32)
  1. DOCETAXEL [Suspect]
     Active Substance: DOCETAXEL
     Indication: HER2 positive breast cancer
     Dosage: 120 MILLIGRAM 3 TIMES A WEEK (EVERY3 WEEKS)
     Route: 042
     Dates: start: 20190418, end: 20190711
  2. EXEMESTANE [Suspect]
     Active Substance: EXEMESTANE
     Indication: HER2 positive breast cancer
     Dosage: 25 MILLIGRAM, ONCE A DAY
     Route: 048
     Dates: start: 20190801, end: 20201021
  3. PERTUZUMAB [Suspect]
     Active Substance: PERTUZUMAB
     Indication: Breast cancer
     Dosage: 420 MILLIGRAM 3TIMES A DAY (EVERY 3 WEEKS)
     Route: 042
     Dates: start: 20190418, end: 20190926
  4. PERTUZUMAB [Suspect]
     Active Substance: PERTUZUMAB
     Indication: HER2 positive breast cancer
  5. ADO-TRASTUZUMAB EMTANSINE [Suspect]
     Active Substance: ADO-TRASTUZUMAB EMTANSINE
     Indication: HER2 positive breast cancer
     Dosage: 205 MILLIGRAM 3 TIMES A WEEK
     Route: 042
     Dates: start: 20201021, end: 20210609
  6. ADO-TRASTUZUMAB EMTANSINE [Suspect]
     Active Substance: ADO-TRASTUZUMAB EMTANSINE
     Dosage: 185 MILLIGRAM, 3 WEEKS
     Route: 042
     Dates: start: 20210609, end: 20210630
  7. ADO-TRASTUZUMAB EMTANSINE [Suspect]
     Active Substance: ADO-TRASTUZUMAB EMTANSINE
     Dosage: 170 MILLIGRAM, 3 WEEKS
     Route: 042
     Dates: start: 20210630, end: 20220105
  8. ADO-TRASTUZUMAB EMTANSINE [Suspect]
     Active Substance: ADO-TRASTUZUMAB EMTANSINE
     Dosage: 134 MILLIGRAM,3 WEEKS
     Route: 042
     Dates: start: 20220126
  9. BISOPROLOL [Concomitant]
     Active Substance: BISOPROLOL
     Indication: Left ventricular dysfunction
     Dosage: 2.5 MILLIGRAM, TWO TIMES A DAY(ONGOING = CHECKED )
     Route: 065
     Dates: start: 20190926
  10. BISOPROLOL [Concomitant]
     Active Substance: BISOPROLOL
     Dosage: UNK(ONGOING = CHECKED)
     Route: 065
     Dates: start: 20191009
  11. BISOPROLOL [Concomitant]
     Active Substance: BISOPROLOL
     Dosage: 2.5 MILLIGRAM, TWO TIMES A DAY
     Route: 065
     Dates: start: 20210826, end: 20220222
  12. BISOPROLOL [Concomitant]
     Active Substance: BISOPROLOL
     Dosage: 2.5 MILLIGRAM, TWO TIMES A DAY(ONGOING = CHECKED )
     Route: 065
     Dates: start: 20220223
  13. CHLORPHENIRAMINE MALEATE [Concomitant]
     Active Substance: CHLORPHENIRAMINE MALEATE
     Indication: Product used for unknown indication
     Dosage: 10 MILLIGRAM, 3 WEEK(ONGOING = CHECKED )
     Route: 065
     Dates: start: 20190328, end: 20190711
  14. CHLORPHENIRAMINE MALEATE [Concomitant]
     Active Substance: CHLORPHENIRAMINE MALEATE
     Dosage: 10 MILLIGRAM, 3 WEEK(ONGOING = CHECKED )
     Route: 065
     Dates: start: 20201021
  15. DEXAMETHASONE [Concomitant]
     Active Substance: DEXAMETHASONE
     Indication: Product used for unknown indication
     Dosage: 4 MILLIGRAM, WEEK(ONGOING = CHECKED )
     Route: 065
     Dates: start: 20201021
  16. EDOXABAN [Concomitant]
     Active Substance: EDOXABAN
     Indication: Left ventricular dysfunction
     Dosage: 30 MILLIGRAM, ONCE A DAY
     Route: 065
     Dates: start: 20191009
  17. EDOXABAN [Concomitant]
     Active Substance: EDOXABAN
     Dosage: 30 MILLIGRAM, ONCE A DAY(ONGOING = CHECKED )
     Route: 065
     Dates: start: 20210826
  18. ENTRESTO [Concomitant]
     Active Substance: SACUBITRIL\VALSARTAN
     Indication: Left ventricular dysfunction
     Dosage: 24 MILLIGRAM, TWO TIMES A DAY(ONGOING = CHECKED )
     Route: 065
     Dates: start: 20190926
  19. ENTRESTO [Concomitant]
     Active Substance: SACUBITRIL\VALSARTAN
     Dosage: 24 MILLIGRAM
     Route: 065
     Dates: start: 20191009
  20. ENTRESTO [Concomitant]
     Active Substance: SACUBITRIL\VALSARTAN
     Dosage: 50 MILLIGRAM, TWO TIMES A DA
     Route: 065
     Dates: start: 20210826
  21. FLUIMUCIL [Concomitant]
     Active Substance: ACETYLCYSTEINE
     Indication: Product used for unknown indication
     Dosage: 2 DOSAGE FORM, ONCE A DAY(ONGOING = CHECKED )
     Route: 065
     Dates: start: 20201202
  22. GRANISETRON [Concomitant]
     Active Substance: GRANISETRON
     Indication: Product used for unknown indication
     Dosage: 1 MILLIGRAM, 3 WEEK(ONGOING = CHECKED )
     Route: 065
     Dates: start: 20190328, end: 20190711
  23. GRANISETRON [Concomitant]
     Active Substance: GRANISETRON
     Dosage: 1 MILLIGRAM, 3 WEEKS(ONGOING = CHECKED )
     Route: 065
     Dates: start: 20201021
  24. LASIX [Concomitant]
     Active Substance: FUROSEMIDE
     Indication: Left ventricular dysfunction
     Dosage: 25 MILLIGRAM, ONCE A DAY(ONGOING = CHECKED )
     Route: 065
     Dates: start: 20191009
  25. LASIX [Concomitant]
     Active Substance: FUROSEMIDE
     Dosage: UNK (ONGOING = CHECKED)
     Route: 065
     Dates: start: 20210826
  26. PANTOPRAZOLE [Concomitant]
     Active Substance: PANTOPRAZOLE
     Indication: Product used for unknown indication
     Dosage: 20 MILLIGRAM, ONCE A DAY(ONGOING = CHECKED )
     Route: 065
     Dates: start: 20190926
  27. PANTOPRAZOLE [Concomitant]
     Active Substance: PANTOPRAZOLE
     Dosage: 40 MILLIGRAM, ONCE A DAY(ONGOING = CHECKED )
     Route: 065
     Dates: start: 20201223
  28. NALOXONE HYDROCHLORIDE\OXYCODONE HYDROCHLORIDE [Concomitant]
     Active Substance: NALOXONE HYDROCHLORIDE\OXYCODONE HYDROCHLORIDE
     Indication: Product used for unknown indication
     Dosage: 10 MILLIGRAM, TWO TIMES A DAY(ONGOING = CHECKED )
     Route: 065
     Dates: start: 20201007, end: 20201020
  29. NALOXONE HYDROCHLORIDE\OXYCODONE HYDROCHLORIDE [Concomitant]
     Active Substance: NALOXONE HYDROCHLORIDE\OXYCODONE HYDROCHLORIDE
     Dosage: 5 MILLIGRAM, ONCE A DAY(ONGOING = CHECKED )
     Route: 065
     Dates: start: 20201021
  30. METHYLPREDNISOLONE [Concomitant]
     Active Substance: METHYLPREDNISOLONE
     Indication: Product used for unknown indication
     Dosage: 125 MILLIGRAM, 3 WEEK
     Route: 065
     Dates: start: 20190418
  31. ACETAMINOPHEN [Concomitant]
     Active Substance: ACETAMINOPHEN
     Indication: Product used for unknown indication
     Dosage: 1 GRAM
     Route: 065
  32. NEULASTA [Concomitant]
     Active Substance: PEGFILGRASTIM
     Indication: Product used for unknown indication
     Dosage: 6 MILLIGRAM, 3 WEEKS
     Route: 065

REACTIONS (2)
  - Oxygen saturation decreased [Recovered/Resolved]
  - Anaemia [Not Recovered/Not Resolved]

NARRATIVE: CASE EVENT DATE: 20220105
